FAERS Safety Report 9455990 (Version 3)
Quarter: 2013Q3

REPORT INFORMATION
  Report Type: Spontaneous
  Country: GB (occurrence: GB)
  Receive Date: 20130813
  Receipt Date: 20130916
  Transmission Date: 20140515
  Serious: Yes (Hospitalization, Other)
  Sender: FDA-Public Use
  Company Number: GB-TEVA-423519ISR

PATIENT
  Age: 37 Year
  Sex: Male

DRUGS (4)
  1. LORATADINE [Suspect]
     Indication: SEASONAL ALLERGY
     Route: 048
  2. EPILIM CHRONO [Interacting]
     Indication: EPILEPSY
     Dosage: 500 MILLIGRAM DAILY; STRENGTH: 333 MG ; 145 MG, FORM OF ADMIN: PROLONGED-RELEASE GRANULES
     Route: 048
     Dates: start: 201307
  3. CETIRIZINE [Concomitant]
     Indication: SEASONAL ALLERGY
     Dosage: 10 MILLIGRAM DAILY;
  4. FLUOXETINE [Concomitant]
     Dosage: 20 MILLIGRAM DAILY;

REACTIONS (3)
  - Convulsion [Recovered/Resolved]
  - Drug interaction [Unknown]
  - Drug dispensing error [Unknown]
